FAERS Safety Report 6767366-9 (Version None)
Quarter: 2010Q2

REPORT INFORMATION
  Report Type: 
  Country: None (occurrence: None)
  Receive Date: 20100614
  Receipt Date: 20100512
  Transmission Date: 20101027
  Serious: No
  Sender: FDA-Public Use
  Company Number: US-BAYER-201015560BCC

PATIENT
  Age: 24 Year
  Sex: Female
  Weight: 42 kg

DRUGS (2)
  1. MIDOL [Suspect]
     Indication: DYSMENORRHOEA
     Dosage: TOTAL DAILY DOSE: 1 DF
     Route: 048
  2. MIDOL [Suspect]
     Indication: DYSMENORRHOEA
     Dosage: TOTAL DAILY DOSE: 2 DF
     Route: 048
     Dates: start: 20100511, end: 20100511

REACTIONS (9)
  - ABDOMINAL DISCOMFORT [None]
  - ASTHENIA [None]
  - CHILLS [None]
  - DIZZINESS [None]
  - DYSMENORRHOEA [None]
  - FATIGUE [None]
  - FEELING JITTERY [None]
  - NAUSEA [None]
  - PYREXIA [None]
